FAERS Safety Report 6139428-0 (Version None)
Quarter: 2009Q2

REPORT INFORMATION
  Report Type: 
  Country: None (occurrence: None)
  Receive Date: 20090401
  Receipt Date: 20090318
  Transmission Date: 20091009
  Serious: Yes (Hospitalization)
  Sender: FDA-Public Use
  Company Number: PHEH2009US02753

PATIENT
  Sex: Female

DRUGS (4)
  1. ENABLEX [Suspect]
     Dosage: 7.5 MG, UNK
     Dates: start: 20080101
  2. ENABLEX [Suspect]
     Dosage: 15 MG, UNK
     Dates: start: 20080901
  3. AMLODIPINE BESYLATE [Concomitant]
     Dosage: 2.5 MG, UNK
  4. PANTOPRAZOLE SODIUM [Concomitant]
     Dosage: 40 MG, UNK

REACTIONS (5)
  - ABDOMINAL PAIN [None]
  - DRUG INEFFECTIVE [None]
  - DRY MOUTH [None]
  - HIP ARTHROPLASTY [None]
  - VISION BLURRED [None]
